FAERS Safety Report 24116516 (Version 2)
Quarter: 2025Q2

REPORT INFORMATION
  Report Type: Spontaneous
  Country: US (occurrence: US)
  Receive Date: 20240722
  Receipt Date: 20250502
  Transmission Date: 20250717
  Serious: No
  Sender: ASTELLAS
  Company Number: US-ASTELLAS-2024US011708

PATIENT
  Age: 90 Year
  Sex: Female

DRUGS (1)
  1. MYRBETRIQ [Suspect]
     Active Substance: MIRABEGRON
     Indication: Product used for unknown indication
     Dosage: 25 MG, ONCE DAILY (STARTED ON ABOUT 8 TO 9 WEEKS AGO)
     Route: 065
     Dates: start: 202402, end: 202404

REACTIONS (12)
  - Stress urinary incontinence [Unknown]
  - Nocturia [Unknown]
  - Urge incontinence [Unknown]
  - Condition aggravated [Unknown]
  - Mobility decreased [Unknown]
  - Bladder disorder [Unknown]
  - Condition aggravated [Unknown]
  - Impaired quality of life [Unknown]
  - Anal incontinence [Unknown]
  - Skin odour abnormal [Unknown]
  - Loss of bladder sensation [Unknown]
  - Drug ineffective [Unknown]
